FAERS Safety Report 5789064-0 (Version None)
Quarter: 2008Q2

REPORT INFORMATION
  Report Type: 
  Country: None (occurrence: None)
  Receive Date: 20080626
  Receipt Date: 20080625
  Transmission Date: 20081010
  Serious: Yes (Hospitalization)
  Sender: FDA-Public Use
  Company Number: D0055438A

PATIENT
  Age: 70 Year
  Sex: Male
  Weight: 80 kg

DRUGS (10)
  1. REQUIP [Suspect]
     Indication: PARKINSON'S DISEASE
     Route: 048
     Dates: start: 20050216, end: 20070918
  2. LEVOCARB [Concomitant]
     Indication: PARKINSON'S DISEASE
     Dosage: 50MG THREE TIMES PER DAY
     Route: 048
     Dates: start: 20050601
  3. BELOC-ZOK [Concomitant]
     Dosage: 95MG PER DAY
     Route: 048
  4. ASPIRIN [Concomitant]
     Dosage: 100MG PER DAY
     Route: 048
  5. AMARYL [Concomitant]
     Dosage: .5MG PER DAY
     Route: 048
  6. FLUVASTATIN [Concomitant]
     Dosage: 40MG PER DAY
     Route: 048
  7. MOLSIDOMIN [Concomitant]
     Dosage: 4MG TWICE PER DAY
     Route: 048
  8. AMITRIPTYLINE HCL [Concomitant]
     Indication: INSOMNIA
     Dosage: 20MG PER DAY
     Route: 048
     Dates: start: 20050401, end: 20070901
  9. SIFROL [Concomitant]
     Indication: PARKINSON'S DISEASE
     Route: 048
     Dates: start: 20050101, end: 20050101
  10. CABASERIL [Concomitant]
     Indication: PARKINSON'S DISEASE
     Route: 048
     Dates: start: 20050101, end: 20050208

REACTIONS (10)
  - DEPRESSION [None]
  - HALLUCINATION [None]
  - HALLUCINATION, VISUAL [None]
  - INSOMNIA [None]
  - PATHOLOGICAL GAMBLING [None]
  - SELF ESTEEM DECREASED [None]
  - SLEEP DISORDER [None]
  - SOMNOLENCE [None]
  - SUDDEN ONSET OF SLEEP [None]
  - SYNCOPE [None]
